FAERS Safety Report 12286701 (Version 1)
Quarter: 2016Q2

REPORT INFORMATION
  Report Type: Spontaneous
  Country: CN (occurrence: CN)
  Receive Date: 20160420
  Receipt Date: 20160420
  Transmission Date: 20160815
  Serious: Yes (Hospitalization, Other)
  Sender: FDA-Public Use
  Company Number: CN-MYLANLABS-2016M1016384

PATIENT

DRUGS (3)
  1. CAPECITABINE. [Suspect]
     Active Substance: CAPECITABINE
     Indication: COLON CANCER
     Dosage: 5 CYCLES
     Route: 065
     Dates: start: 201001
  2. OPRELVEKIN. [Suspect]
     Active Substance: OPRELVEKIN
     Indication: THROMBOCYTOPENIA
     Dosage: 3 MG / DAY
     Route: 058
  3. OXALIPLATIN. [Suspect]
     Active Substance: OXALIPLATIN
     Indication: COLON CANCER
     Dosage: 5 CYCLES
     Route: 065
     Dates: start: 201001

REACTIONS (2)
  - Thrombocytopenia [Recovered/Resolved]
  - Capillary leak syndrome [Recovered/Resolved]
